FAERS Safety Report 13428818 (Version 2)
Quarter: 2017Q2

REPORT INFORMATION
  Report Type: Report from Study
  Country: US (occurrence: US)
  Receive Date: 20170411
  Receipt Date: 20170425
  Transmission Date: 20170830
  Serious: Yes (Death, Hospitalization, Other)
  Sender: FDA-Public Use
  Company Number: US-BAYER-2017-037601

PATIENT
  Age: 64 Year
  Sex: Female

DRUGS (2)
  1. STIVARGA [Suspect]
     Active Substance: REGORAFENIB
     Indication: COLORECTAL CANCER
     Dosage: 120 MG, QD
     Route: 048
     Dates: start: 20170225, end: 20170314
  2. STIVARGA [Suspect]
     Active Substance: REGORAFENIB
     Indication: COLORECTAL CANCER
     Dosage: 80 MG, QD
     Route: 048
     Dates: start: 20170222, end: 20170224

REACTIONS (18)
  - Gastrointestinal infection [None]
  - Fatigue [Not Recovered/Not Resolved]
  - Pain in extremity [None]
  - Red blood cell count decreased [Recovered/Resolved]
  - Death [Fatal]
  - Cough [None]
  - Decreased appetite [Recovering/Resolving]
  - Pain in extremity [None]
  - Oral candidiasis [Recovered/Resolved]
  - Musculoskeletal stiffness [None]
  - Off label use [None]
  - Anaemia [None]
  - Viral upper respiratory tract infection [None]
  - Red blood cell count decreased [Not Recovered/Not Resolved]
  - Dehydration [None]
  - Urinary tract infection [None]
  - Haemoglobin decreased [None]
  - Asthenia [Not Recovered/Not Resolved]

NARRATIVE: CASE EVENT DATE: 2017
